FAERS Safety Report 19017847 (Version 1)
Quarter: 2021Q1

REPORT INFORMATION
  Report Type: Report from Study
  Country: GB (occurrence: GB)
  Receive Date: 20210317
  Receipt Date: 20210317
  Transmission Date: 20210420
  Serious: Yes (Other)
  Sender: FDA-Public Use
  Company Number: NVSC2021GB053480

PATIENT
  Sex: Male

DRUGS (1)
  1. HYRIMOZ [Suspect]
     Active Substance: ADALIMUMAB-ADAZ
     Indication: ANKYLOSING SPONDYLITIS
     Dosage: 1 DF,EOW
     Route: 065
     Dates: start: 20201201

REACTIONS (3)
  - Product supply issue [Unknown]
  - Dementia Alzheimer^s type [Unknown]
  - Chronic obstructive pulmonary disease [Unknown]
